FAERS Safety Report 9288118 (Version 3)
Quarter: 2013Q3

REPORT INFORMATION
  Report Type: Spontaneous
  Country: US (occurrence: US)
  Receive Date: 20130514
  Receipt Date: 20130905
  Transmission Date: 20140515
  Serious: No
  Sender: FDA-Public Use
  Company Number: US-009507513-1305USA004753

PATIENT
  Age: 21 Year
  Sex: Female
  Weight: 68.27 kg

DRUGS (3)
  1. MIRALAX [Suspect]
     Indication: CONSTIPATION
     Dosage: 17 G, ONCE
     Route: 048
     Dates: start: 20130501
  2. MIRALAX [Suspect]
     Indication: MEDICAL OBSERVATION
  3. DOCQLACE [Concomitant]
     Indication: HAEMORRHOIDS
     Dosage: UNK, UNKNOWN

REACTIONS (5)
  - Pharyngeal oedema [Recovered/Resolved]
  - Paraesthesia oral [Not Recovered/Not Resolved]
  - Chest discomfort [Not Recovered/Not Resolved]
  - Throat irritation [Recovered/Resolved]
  - Sneezing [Recovered/Resolved]
